FAERS Safety Report 5472839-5 (Version None)
Quarter: 2007Q4

REPORT INFORMATION
  Report Type: 
  Country: None (occurrence: None)
  Receive Date: 20071001
  Receipt Date: 20061128
  Transmission Date: 20080405
  Serious: No
  Sender: FDA-Public Use
  Company Number: US-ASTRAZENECA-2006UW26620

PATIENT
  Age: 54 Year
  Sex: Female
  Weight: 83.5 kg

DRUGS (3)
  1. ARIMIDEX [Suspect]
     Indication: BREAST CANCER STAGE III
     Route: 048
     Dates: start: 20040101
  2. CYMBALTA [Concomitant]
     Indication: DEPRESSION
  3. REPTAPRIL [Concomitant]

REACTIONS (5)
  - ALOPECIA [None]
  - BODY HEIGHT DECREASED [None]
  - DEPRESSION [None]
  - HAIR TEXTURE ABNORMAL [None]
  - WEIGHT INCREASED [None]
